FAERS Safety Report 12574661 (Version 1)
Quarter: 2016Q3

REPORT INFORMATION
  Report Type: Spontaneous
  Country: US (occurrence: US)
  Receive Date: 20160720
  Receipt Date: 20160720
  Transmission Date: 20161109
  Serious: Yes (Other)
  Sender: FDA-Public Use
  Company Number: US-PFIZER INC-2016347253

PATIENT
  Age: 39 Year
  Sex: Female

DRUGS (6)
  1. GEODON [Suspect]
     Active Substance: ZIPRASIDONE HYDROCHLORIDE\ZIPRASIDONE MESYLATE
     Indication: MAJOR DEPRESSION
     Dosage: UNK
     Dates: start: 201605, end: 201605
  2. ABILIFY [Suspect]
     Active Substance: ARIPIPRAZOLE
     Dosage: UNK
     Dates: start: 2016
  3. GLYXAMBI [Concomitant]
     Active Substance: EMPAGLIFLOZIN\LINAGLIPTIN
     Dosage: 25 MG, UNK
  4. EFFEXOR [Concomitant]
     Active Substance: VENLAFAXINE HYDROCHLORIDE
     Dosage: UNK, DAILY
  5. TRULICITY [Concomitant]
     Active Substance: DULAGLUTIDE
     Dosage: 25 MG, UNK
  6. ABILIFY [Suspect]
     Active Substance: ARIPIPRAZOLE
     Indication: MAJOR DEPRESSION
     Dosage: 5 MG, UNK
     Route: 048
     Dates: start: 2013, end: 201605

REACTIONS (6)
  - Drug ineffective [Unknown]
  - Blood glucose increased [Unknown]
  - Feeling abnormal [Unknown]
  - Hallucination [Unknown]
  - Depression [Unknown]
  - Drug dependence [Unknown]
